FAERS Safety Report 4972059-4 (Version None)
Quarter: 2006Q2

REPORT INFORMATION
  Report Type: 
  Country: None (occurrence: None)
  Receive Date: 20060413
  Receipt Date: 20060314
  Transmission Date: 20061013
  Serious: Yes (Other)
  Sender: FDA-Public Use
  Company Number: BE-MERCK-0603BEL00047

PATIENT
  Age: 58 Year
  Sex: Male
  Weight: 72 kg

DRUGS (2)
  1. ZETIA [Suspect]
     Indication: HYPERCHOLESTEROLAEMIA
     Route: 048
     Dates: start: 20060101, end: 20060110
  2. ZETIA [Suspect]
     Route: 048
     Dates: end: 20060101

REACTIONS (2)
  - OEDEMA PERIPHERAL [None]
  - SENSATION OF FOREIGN BODY [None]
